FAERS Safety Report 14419835 (Version 1)
Quarter: 2018Q1

REPORT INFORMATION
  Report Type: Spontaneous
  Country: FR (occurrence: FR)
  Receive Date: 20180122
  Receipt Date: 20180122
  Transmission Date: 20180509
  Serious: Yes (Death, Hospitalization, Other)
  Sender: FDA-Public Use
  Company Number: FR-ALLERGAN-1803367US

PATIENT
  Age: 86 Year
  Sex: Male

DRUGS (4)
  1. MILNACIPRAN - BP [Suspect]
     Active Substance: MILNACIPRAN
     Indication: ADULT FAILURE TO THRIVE
     Dosage: 50 MG (1 CAPSULE), QD
     Route: 065
     Dates: start: 20171221, end: 20171221
  2. SEROPLEX [Concomitant]
     Active Substance: ESCITALOPRAM OXALATE
     Indication: ADULT FAILURE TO THRIVE
     Dosage: 5 MG, UNK
     Route: 065
     Dates: end: 20171221
  3. EZETROL [Concomitant]
     Active Substance: EZETIMIBE
     Indication: BLOOD CHOLESTEROL ABNORMAL
     Dosage: UNK
  4. ESOMEPRAZOL [Concomitant]
     Active Substance: ESOMEPRAZOLE
     Dosage: UNK

REACTIONS (7)
  - Death [Fatal]
  - Acute kidney injury [Recovered/Resolved]
  - Atrial fibrillation [Not Recovered/Not Resolved]
  - Septic shock [Recovered/Resolved]
  - Hepatitis [Recovered/Resolved]
  - Off label use [Unknown]
  - Feeling abnormal [Recovered/Resolved]

NARRATIVE: CASE EVENT DATE: 20171221
